FAERS Safety Report 13496805 (Version 1)
Quarter: 2017Q2

REPORT INFORMATION
  Report Type: Report from Study
  Country: US (occurrence: US)
  Receive Date: 20170428
  Receipt Date: 20170428
  Transmission Date: 20170830
  Serious: Yes (Hospitalization)
  Sender: FDA-Public Use
  Company Number: US-EXELIXIS-CABO-17008967

PATIENT
  Sex: Male
  Weight: 88.44 kg

DRUGS (18)
  1. FERROUS SULFATE. [Concomitant]
     Active Substance: FERROUS SULFATE
  2. HYDROXYZINE [Concomitant]
     Active Substance: HYDROXYZINE HYDROCHLORIDE
  3. LEVOTHYROXINE. [Concomitant]
     Active Substance: LEVOTHYROXINE
  4. MUPIROCIN. [Concomitant]
     Active Substance: MUPIROCIN
  5. DOXYCYCLINE MONOHYDRATE [Concomitant]
     Active Substance: DOXYCYCLINE
  6. CARAFATE [Concomitant]
     Active Substance: SUCRALFATE
  7. LISINOPRIL. [Concomitant]
     Active Substance: LISINOPRIL
  8. MORPHINE SULFATE. [Concomitant]
     Active Substance: MORPHINE SULFATE
  9. DULOXETINE. [Concomitant]
     Active Substance: DULOXETINE
  10. SENNA LAXATIVE [Concomitant]
     Active Substance: SENNOSIDES
  11. OXYCODONE [Concomitant]
     Active Substance: OXYCODONE
  12. PREDNISONE. [Concomitant]
     Active Substance: PREDNISONE
  13. OXYCONTIN [Concomitant]
     Active Substance: OXYCODONE HYDROCHLORIDE
  14. OMEPRAZOLE. [Concomitant]
     Active Substance: OMEPRAZOLE
  15. AFINITOR [Concomitant]
     Active Substance: EVEROLIMUS
  16. PANTOPRAZOLE [Concomitant]
     Active Substance: PANTOPRAZOLE
  17. CABOMETYX [Suspect]
     Active Substance: CABOZANTINIB S-MALATE
     Indication: RENAL CANCER
     Dosage: 60 MG, QD
     Route: 048
  18. AMOXICILLIN. [Concomitant]
     Active Substance: AMOXICILLIN

REACTIONS (1)
  - Hospitalisation [Unknown]
